FAERS Safety Report 6117496-X (Version None)
Quarter: 2009Q1

REPORT INFORMATION
  Report Type: 
  Country: None (occurrence: None)
  Receive Date: 20090314
  Receipt Date: 20090210
  Transmission Date: 20090719
  Serious: No
  Sender: FDA-Public Use
  Company Number: US-ABBOTT-09P-163-0498717-00

PATIENT
  Age: 54 Year
  Sex: Male
  Weight: 82.628 kg

DRUGS (3)
  1. HUMIRA [Suspect]
     Indication: CROHN'S DISEASE
     Dates: start: 20050101
  2. AZACOL [Concomitant]
     Indication: CROHN'S DISEASE
  3. CELEXA [Concomitant]
     Indication: DEPRESSION

REACTIONS (2)
  - BLOOD PRESSURE INCREASED [None]
  - BLOOD URINE PRESENT [None]
